FAERS Safety Report 8508987 (Version 2)
Quarter: 2012Q4

REPORT INFORMATION
  Report Type: 
  Country: US (occurrence: US)
  Receive Date: 20120412
  Receipt Date: 20120917
  Transmission Date: 20130627
  Serious: No
  Sender: FDA-Public Use
  Company Number: US-ASTRAZENECA-2011SE08912

PATIENT
  Age: 52 Year
  Sex: Female

DRUGS (5)
  1. NEXIUM [Suspect]
     Route: 048
  2. TOPROL XL [Suspect]
     Route: 048
  3. PRAVASTATIN [Concomitant]
  4. BUSPIRONE [Concomitant]
  5. DIAZEPAM [Concomitant]

REACTIONS (7)
  - Gastric disorder [Unknown]
  - Diabetes mellitus [Unknown]
  - Blood cholesterol increased [Unknown]
  - Gastrooesophageal reflux disease [Unknown]
  - Liver disorder [Unknown]
  - Malaise [Unknown]
  - Drug dose omission [Unknown]
